FAERS Safety Report 5693010-8 (Version None)
Quarter: 2008Q2

REPORT INFORMATION
  Report Type: 
  Country: None (occurrence: None)
  Receive Date: 20080402
  Receipt Date: 20080402
  Transmission Date: 20081010
  Serious: Yes (Other)
  Sender: FDA-Public Use
  Company Number: None

PATIENT
  Age: 73 Year
  Sex: Female
  Weight: 62.5964 kg

DRUGS (1)
  1. TRASDERM-SCOP 15 MG NCVARTIS CONSUMER HEALTH 200 KIMBALL DR. PARSIPPAX [Suspect]
     Indication: MOTION SICKNESS
     Dosage: 1 EVERY 3 DAYS PATCH
     Dates: start: 20080210, end: 20080212

REACTIONS (3)
  - ABNORMAL BEHAVIOUR [None]
  - AMNESIA [None]
  - HALLUCINATION [None]
